FAERS Safety Report 16714157 (Version 2)
Quarter: 2019Q4

REPORT INFORMATION
  Report Type: Spontaneous
  Country: US (occurrence: US)
  Receive Date: 20190819
  Receipt Date: 20191115
  Transmission Date: 20200122
  Serious: No
  Sender: FDA-Public Use
  Company Number: US-009507513-1908USA006252

PATIENT
  Sex: Female

DRUGS (1)
  1. KEYTRUDA [Suspect]
     Active Substance: PEMBROLIZUMAB
     Indication: FALLOPIAN TUBE CANCER
     Dosage: UNK UNK, UNKNOWN

REACTIONS (2)
  - Anaemia [Unknown]
  - Product use in unapproved indication [Unknown]
